FAERS Safety Report 9212903 (Version 1)
Quarter: 2013Q2

REPORT INFORMATION
  Report Type: Report from Study
  Country: US (occurrence: US)
  Receive Date: 20130405
  Receipt Date: 20130405
  Transmission Date: 20140414
  Serious: Yes (Other)
  Sender: FDA-Public Use
  Company Number: US-JNJFOC-20130318217

PATIENT
  Sex: 0

DRUGS (3)
  1. REMICADE [Suspect]
     Indication: COLITIS ULCERATIVE
     Route: 042
  2. 6MP [Suspect]
     Indication: COLITIS ULCERATIVE
     Route: 065
  3. 6MP [Suspect]
     Indication: COLITIS ULCERATIVE
     Route: 065

REACTIONS (4)
  - Arthropathy [Unknown]
  - Hepatic enzyme increased [Unknown]
  - Migraine [Unknown]
  - Drug ineffective [Unknown]
